FAERS Safety Report 15743603 (Version 1)
Quarter: 2018Q4

REPORT INFORMATION
  Report Type: Spontaneous
  Country: US (occurrence: US)
  Receive Date: 20181220
  Receipt Date: 20181220
  Transmission Date: 20190205
  Serious: No
  Sender: FDA-Public Use
  Company Number: US-PFIZER INC-2018523743

PATIENT
  Age: 71 Year
  Sex: Female

DRUGS (1)
  1. GENOTROPIN MQ [Suspect]
     Active Substance: SOMATROPIN
     Dosage: 0.2 MG, DAILY

REACTIONS (8)
  - Blood urea nitrogen/creatinine ratio increased [Unknown]
  - Fatigue [Unknown]
  - Insomnia [Unknown]
  - Blood thyroid stimulating hormone decreased [Unknown]
  - Tri-iodothyronine free increased [Unknown]
  - Renin increased [Unknown]
  - Memory impairment [Unknown]
  - Glomerular filtration rate decreased [Unknown]
